FAERS Safety Report 17014761 (Version 1)
Quarter: 2019Q4

REPORT INFORMATION
  Report Type: Spontaneous
  Country: US (occurrence: US)
  Receive Date: 20191002
  Receipt Date: 20191002
  Transmission Date: 20200122
  Serious: Yes (Disabling)
  Sender: FDA-Public Use
  Company Number: None

PATIENT
  Age: 83 Year
  Sex: Female
  Weight: 89.81 kg

DRUGS (1)
  1. REPATHA [Suspect]
     Active Substance: EVOLOCUMAB
     Indication: BLOOD CHOLESTEROL INCREASED
     Dosage: ?          OTHER FREQUENCY:2X MONTH;?
     Dates: start: 201903

REACTIONS (5)
  - Gastrointestinal pain [None]
  - Diarrhoea [None]
  - Blood glucose increased [None]
  - Oropharyngeal pain [None]
  - Arthralgia [None]

NARRATIVE: CASE EVENT DATE: 201903
